FAERS Safety Report 23535852 (Version 1)
Quarter: 2024Q1

REPORT INFORMATION
  Report Type: Spontaneous
  Country: US (occurrence: US)
  Receive Date: 20240218
  Receipt Date: 20240218
  Transmission Date: 20240410
  Serious: No
  Sender: FDA-Public Use
  Company Number: US-BAUSCHBL-2024BNL001629

PATIENT
  Age: 76 Year
  Sex: Female

DRUGS (4)
  1. PROLENSA [Suspect]
     Active Substance: BROMFENAC SODIUM
     Indication: Routine health maintenance
     Route: 065
  2. MURO 128 [Suspect]
     Active Substance: SODIUM CHLORIDE
     Indication: Corneal oedema
     Route: 065
     Dates: start: 20240204
  3. MURO 128 [Suspect]
     Active Substance: SODIUM CHLORIDE
     Indication: Mydriasis
  4. MURO 128 [Suspect]
     Active Substance: SODIUM CHLORIDE
     Indication: Intraocular pressure test

REACTIONS (7)
  - Eye discharge [Unknown]
  - Counterfeit product administered [Unknown]
  - Product container issue [Unknown]
  - Product quality issue [Unknown]
  - Product physical consistency issue [Unknown]
  - Product odour abnormal [Unknown]
  - Product container seal issue [Unknown]

NARRATIVE: CASE EVENT DATE: 20240204
